FAERS Safety Report 5652524-7 (Version None)
Quarter: 2008Q1

REPORT INFORMATION
  Report Type: 
  Country: None (occurrence: None)
  Receive Date: 20080305
  Receipt Date: 20080305
  Transmission Date: 20080703
  Serious: Yes (Hospitalization)
  Sender: FDA-Public Use
  Company Number: None

PATIENT
  Age: 41 Year
  Sex: Male
  Weight: 120.2032 kg

DRUGS (1)
  1. CHANTIX [Suspect]
     Indication: SMOKING CESSATION THERAPY
     Dosage: PER PACK INSERT  PO
     Route: 048
     Dates: start: 20070910, end: 20071012

REACTIONS (2)
  - CHEST PAIN [None]
  - PALPITATIONS [None]
